FAERS Safety Report 9835555 (Version 2)
Quarter: 2014Q1

REPORT INFORMATION
  Report Type: Spontaneous
  Country: JP (occurrence: JP)
  Receive Date: 20140122
  Receipt Date: 20140130
  Transmission Date: 20141002
  Serious: Yes (Hospitalization)
  Sender: FDA-Public Use
  Company Number: JP-ABBVIE-14P-087-1190847-00

PATIENT
  Age: 50 Year
  Sex: Male

DRUGS (14)
  1. NORVIR [Suspect]
     Indication: HIV INFECTION
     Route: 048
     Dates: start: 20110429, end: 20121004
  2. STOCRIN [Suspect]
     Indication: HIV INFECTION
     Route: 048
     Dates: start: 20121005
  3. ISENTRESS [Suspect]
     Indication: HIV INFECTION
     Route: 048
     Dates: start: 20110224, end: 20121004
  4. CEFTRIAXONE SODIUM [Suspect]
     Indication: PNEUMONIA
     Route: 042
     Dates: start: 20120514, end: 20121216
  5. ZITHROMAC [Suspect]
     Indication: PNEUMONIA
     Route: 042
     Dates: start: 20121214, end: 20121214
  6. ZITHROMAC [Suspect]
     Indication: PNEUMONIA
     Dosage: FORMULATION: POR (SR)
     Route: 048
     Dates: start: 20121215, end: 20121215
  7. PREZISTA [Suspect]
     Indication: HIV INFECTION
     Route: 048
     Dates: start: 20110224, end: 20121004
  8. EPZICOM [Suspect]
     Indication: HIV INFECTION
     Route: 048
     Dates: start: 20121005
  9. AMLODIPINE [Concomitant]
     Indication: PRODUCT USED FOR UNKNOWN INDICATION
     Dates: start: 20120408
  10. ALLOPURINOL [Concomitant]
     Indication: PRODUCT USED FOR UNKNOWN INDICATION
  11. URALYT U [Concomitant]
     Indication: PRODUCT USED FOR UNKNOWN INDICATION
     Dates: start: 20120405
  12. BLOPRESS [Concomitant]
     Indication: PRODUCT USED FOR UNKNOWN INDICATION
     Dates: start: 20120404
  13. FUROSEMIDE [Concomitant]
     Indication: PRODUCT USED FOR UNKNOWN INDICATION
     Dates: start: 20120426
  14. LASIX [Concomitant]
     Indication: PRODUCT USED FOR UNKNOWN INDICATION
     Dates: start: 20120510

REACTIONS (3)
  - Pneumonia legionella [Recovered/Resolved]
  - Liver disorder [Recovered/Resolved]
  - Hypertriglyceridaemia [Not Recovered/Not Resolved]
